FAERS Safety Report 8286996-9 (Version None)
Quarter: 2012Q2

REPORT INFORMATION
  Report Type: 
  Country: None (occurrence: None)
  Receive Date: 20120416
  Receipt Date: 20120410
  Transmission Date: 20120825
  Serious: Yes (Hospitalization)
  Sender: FDA-Public Use
  Company Number: HR-GENZYME-CAMP-1002197

PATIENT
  Sex: Female
  Weight: 52.7 kg

DRUGS (3)
  1. ALEMTUZUMAB [Suspect]
     Dosage: 12 MG, QD
     Route: 042
     Dates: start: 20110307, end: 20110309
  2. REBIF [Concomitant]
     Indication: MULTIPLE SCLEROSIS
     Dosage: UNK
     Dates: start: 20030505
  3. ALEMTUZUMAB [Suspect]
     Indication: MULTIPLE SCLEROSIS
     Dosage: 12 MG, QD
     Route: 042
     Dates: start: 20100217, end: 20100221

REACTIONS (1)
  - NEPHROTIC SYNDROME [None]
